FAERS Safety Report 22843391 (Version 2)
Quarter: 2024Q1

REPORT INFORMATION
  Report Type: Spontaneous
  Country: BR (occurrence: BR)
  Receive Date: 20230821
  Receipt Date: 20240308
  Transmission Date: 20240409
  Serious: Yes (Other)
  Sender: FDA-Public Use
  Company Number: BR-SA-2023SA242371

PATIENT
  Age: 36 Year
  Sex: Female
  Weight: 50 kg

DRUGS (1)
  1. ENOXAPARIN SODIUM [Suspect]
     Active Substance: ENOXAPARIN SODIUM
     Indication: Pregnancy
     Dosage: 40 MG, QD

REACTIONS (3)
  - Abortion [Unknown]
  - Exposure during pregnancy [Unknown]
  - Product use in unapproved indication [Unknown]

NARRATIVE: CASE EVENT DATE: 20220101
